FAERS Safety Report 20095686 (Version 2)
Quarter: 2021Q4

REPORT INFORMATION
  Report Type: Other
  Country: US (occurrence: None)
  Receive Date: 20211122
  Receipt Date: 20211130
  Transmission Date: 20220304
  Serious: Yes (Other)
  Sender: FDA-Public Use
  Company Number: US-ROCHE-2956846

PATIENT
  Sex: Female

DRUGS (5)
  1. ACTEMRA [Suspect]
     Active Substance: TOCILIZUMAB
     Indication: Rheumatoid arthritis
     Route: 058
  2. ACTEMRA [Suspect]
     Active Substance: TOCILIZUMAB
  3. ACTEMRA [Suspect]
     Active Substance: TOCILIZUMAB
  4. STREPTOMYCIN [Concomitant]
     Active Substance: STREPTOMYCIN SULFATE
  5. ORENCIA [Concomitant]
     Active Substance: ABATACEPT

REACTIONS (3)
  - Deafness [Unknown]
  - Drug ineffective [Unknown]
  - Inflammation [Unknown]
